FAERS Safety Report 12084237 (Version 1)
Quarter: 2016Q1

REPORT INFORMATION
  Report Type: Spontaneous
  Country: US (occurrence: None)
  Receive Date: 20160216
  Receipt Date: 20160216
  Transmission Date: 20160526
  Serious: Yes (Hospitalization)
  Sender: FDA-Public Use
  Company Number: None

PATIENT
  Age: 81 Year
  Sex: Male
  Weight: 76 kg

DRUGS (1)
  1. UNFRACTIONATED HEPARIN 25000 UNITS IN 500ML [Suspect]
     Active Substance: HEPARIN SODIUM
     Dosage: CONTINUOUS INFUSION
     Dates: start: 20151023, end: 20151029

REACTIONS (4)
  - Hypotension [None]
  - Retroperitoneal haemorrhage [None]
  - Activated partial thromboplastin time prolonged [None]
  - Haemoglobin decreased [None]

NARRATIVE: CASE EVENT DATE: 20151029
